FAERS Safety Report 18944898 (Version 1)
Quarter: 2021Q1

REPORT INFORMATION
  Report Type: Report from Study
  Country: US (occurrence: US)
  Receive Date: 20210226
  Receipt Date: 20210226
  Transmission Date: 20210420
  Serious: Yes (Other)
  Sender: FDA-Public Use
  Company Number: US-MYLANLABS-2021M1009591

PATIENT
  Sex: Female
  Weight: 81.6 kg

DRUGS (3)
  1. VITAMIN D                          /00107901/ [Concomitant]
     Active Substance: ERGOCALCIFEROL
     Dosage: UNK
  2. GLATIRAMER ACETATE INJECTION [Suspect]
     Active Substance: GLATIRAMER ACETATE
     Indication: MULTIPLE SCLEROSIS
     Dosage: 40 MILLIGRAM, 3XW
     Route: 058
     Dates: start: 20201021, end: 20201228
  3. OCREVUS [Suspect]
     Active Substance: OCRELIZUMAB
     Indication: PRODUCT USED FOR UNKNOWN INDICATION
     Dosage: UNK
     Dates: start: 20201229

REACTIONS (2)
  - Maternal exposure during breast feeding [Recovered/Resolved]
  - Mastitis [Recovered/Resolved]
